FAERS Safety Report 10663457 (Version 1)
Quarter: 2014Q4

REPORT INFORMATION
  Report Type: Report from Study
  Country: US (occurrence: US)
  Receive Date: 20141219
  Receipt Date: 20141219
  Transmission Date: 20150529
  Serious: Yes (Hospitalization)
  Sender: FDA-Public Use
  Company Number: US-ABBVIE-14K-163-1320469-00

PATIENT
  Sex: Female

DRUGS (1)
  1. HUMIRA [Suspect]
     Active Substance: ADALIMUMAB
     Indication: RHEUMATOID ARTHRITIS
     Route: 065

REACTIONS (11)
  - Anaemia [Recovered/Resolved]
  - Bronchitis [Recovered/Resolved]
  - Mental status changes [Recovered/Resolved]
  - Fall [Recovering/Resolving]
  - Candida infection [Recovered/Resolved]
  - Blood potassium increased [Unknown]
  - Arthralgia [Recovered/Resolved]
  - Joint injury [Recovering/Resolving]
  - Vomiting [Recovered/Resolved]
  - Thrombosis [Recovered/Resolved]
  - Arthralgia [Recovered/Resolved]

NARRATIVE: CASE EVENT DATE: 2014
